FAERS Safety Report 25605156 (Version 1)
Quarter: 2025Q3

REPORT INFORMATION
  Report Type: Spontaneous
  Country: US (occurrence: US)
  Receive Date: 20250725
  Receipt Date: 20250725
  Transmission Date: 20251021
  Serious: No
  Sender: ABBVIE
  Company Number: US-ABBVIE-6380078

PATIENT
  Sex: Male

DRUGS (3)
  1. KYBELLA [Suspect]
     Active Substance: DEOXYCHOLIC ACID
     Indication: Fat tissue increased
     Route: 023
     Dates: start: 20250512
  2. KYBELLA [Suspect]
     Active Substance: DEOXYCHOLIC ACID
     Indication: Fat tissue increased
     Route: 023
     Dates: start: 20250709
  3. KYBELLA [Suspect]
     Active Substance: DEOXYCHOLIC ACID
     Indication: Fat tissue increased
     Route: 023
     Dates: start: 20250718

REACTIONS (2)
  - Cranial nerve paralysis [Not Recovered/Not Resolved]
  - Dyskinesia [Not Recovered/Not Resolved]
